FAERS Safety Report 25403670 (Version 1)
Quarter: 2025Q2

REPORT INFORMATION
  Report Type: Spontaneous
  Country: CN (occurrence: CN)
  Receive Date: 20250605
  Receipt Date: 20250605
  Transmission Date: 20250717
  Serious: Yes (Other)
  Sender: BEIGENE
  Company Number: CN-BEIGENE-BGN-2025-008733

PATIENT
  Age: 33 Year

DRUGS (20)
  1. TISLELIZUMAB [Suspect]
     Active Substance: TISLELIZUMAB
     Indication: Nasopharyngeal cancer recurrent
  2. TISLELIZUMAB [Suspect]
     Active Substance: TISLELIZUMAB
     Route: 041
  3. TISLELIZUMAB [Suspect]
     Active Substance: TISLELIZUMAB
     Route: 041
  4. TISLELIZUMAB [Suspect]
     Active Substance: TISLELIZUMAB
  5. DOCETAXEL [Suspect]
     Active Substance: DOCETAXEL
     Indication: Nasopharyngeal cancer recurrent
  6. DOCETAXEL [Suspect]
     Active Substance: DOCETAXEL
     Route: 041
  7. DOCETAXEL [Suspect]
     Active Substance: DOCETAXEL
     Route: 041
  8. DOCETAXEL [Suspect]
     Active Substance: DOCETAXEL
  9. FLUOROURACIL [Suspect]
     Active Substance: FLUOROURACIL
     Indication: Nasopharyngeal cancer recurrent
  10. FLUOROURACIL [Suspect]
     Active Substance: FLUOROURACIL
  11. FLUOROURACIL [Suspect]
     Active Substance: FLUOROURACIL
     Route: 041
  12. FLUOROURACIL [Suspect]
     Active Substance: FLUOROURACIL
     Route: 041
  13. FLUOROURACIL [Suspect]
     Active Substance: FLUOROURACIL
  14. FLUOROURACIL [Suspect]
     Active Substance: FLUOROURACIL
  15. FLUOROURACIL [Suspect]
     Active Substance: FLUOROURACIL
     Route: 041
  16. FLUOROURACIL [Suspect]
     Active Substance: FLUOROURACIL
     Route: 041
  17. NEDAPLATIN [Suspect]
     Active Substance: NEDAPLATIN
     Indication: Nasopharyngeal cancer recurrent
  18. NEDAPLATIN [Suspect]
     Active Substance: NEDAPLATIN
     Route: 041
  19. NEDAPLATIN [Suspect]
     Active Substance: NEDAPLATIN
     Route: 041
  20. NEDAPLATIN [Suspect]
     Active Substance: NEDAPLATIN

REACTIONS (1)
  - Myelosuppression [Unknown]
